FAERS Safety Report 6570400-2 (Version None)
Quarter: 2010Q1

REPORT INFORMATION
  Report Type: 
  Country: None (occurrence: None)
  Receive Date: 20100204
  Receipt Date: 20090206
  Transmission Date: 20100710
  Serious: Yes (Hospitalization)
  Sender: FDA-Public Use
  Company Number: A0768670A

PATIENT
  Age: 59 Year
  Sex: Female

DRUGS (1)
  1. ARIXTRA [Suspect]
     Route: 065
     Dates: start: 20080201

REACTIONS (1)
  - HYPOTENSION [None]
